FAERS Safety Report 5165922-5 (Version None)
Quarter: 2006Q4

REPORT INFORMATION
  Report Type: 
  Country: None (occurrence: None)
  Receive Date: 20061206
  Receipt Date: 20061129
  Transmission Date: 20070319
  Serious: Yes (Hospitalization)
  Sender: FDA-Public Use
  Company Number: 2006AP05734

PATIENT
  Age: 65 Year
  Sex: Male

DRUGS (3)
  1. MARCAINE [Suspect]
     Indication: EPIDURAL ANAESTHESIA
     Route: 008
     Dates: start: 20061026, end: 20061108
  2. MAGNESIUM OXIDE [Concomitant]
     Route: 048
     Dates: start: 20061102, end: 20061116
  3. PURSENNID [Concomitant]
     Route: 048
     Dates: start: 20061102, end: 20061116

REACTIONS (4)
  - ALANINE AMINOTRANSFERASE INCREASED [None]
  - ASPARTATE AMINOTRANSFERASE INCREASED [None]
  - BLOOD BILIRUBIN INCREASED [None]
  - JAUNDICE [None]
